FAERS Safety Report 4947364-8 (Version None)
Quarter: 2006Q1

REPORT INFORMATION
  Report Type: 
  Country: None (occurrence: None)
  Receive Date: 20060317
  Receipt Date: 20060309
  Transmission Date: 20060701
  Serious: Yes (Hospitalization)
  Sender: FDA-Public Use
  Company Number: US-MERCK-0603USA02035

PATIENT
  Age: 45 Year
  Sex: Male
  Weight: 87 kg

DRUGS (4)
  1. VIOXX [Suspect]
     Indication: PAIN
     Route: 048
  2. GLUCOPHAGE [Concomitant]
     Route: 048
  3. ELAVIL [Concomitant]
     Route: 048
  4. NEURONTIN [Concomitant]
     Route: 048

REACTIONS (6)
  - BLOOD PRESSURE DECREASED [None]
  - CORONARY ARTERY DISEASE [None]
  - CORONARY ARTERY STENOSIS [None]
  - HYPERCHOLESTEROLAEMIA [None]
  - MYOCARDIAL INFARCTION [None]
  - RALES [None]
